FAERS Safety Report 16662002 (Version 1)
Quarter: 2019Q3

REPORT INFORMATION
  Report Type: Spontaneous
  Country: US (occurrence: US)
  Receive Date: 20190802
  Receipt Date: 20190802
  Transmission Date: 20191004
  Serious: Yes (Other)
  Sender: FDA-Public Use
  Company Number: None

PATIENT
  Age: 52 Year
  Sex: Female

DRUGS (4)
  1. LO LOESTRIN FE [Concomitant]
     Active Substance: ETHINYL ESTRADIOL\NORETHINDRONE ACETATE
  2. LISINOPRIL. [Concomitant]
     Active Substance: LISINOPRIL
  3. CLINDAMYCIN 1% TOPICAL GEL [Suspect]
     Active Substance: CLINDAMYCIN
     Indication: ACNE
     Dosage: ?          QUANTITY:30 GRAM;?
     Route: 061
     Dates: start: 20190601, end: 20190729
  4. BUPROPION. [Concomitant]
     Active Substance: BUPROPION

REACTIONS (2)
  - Pharyngeal swelling [None]
  - Swelling face [None]

NARRATIVE: CASE EVENT DATE: 20190730
